FAERS Safety Report 9759985 (Version 1)
Quarter: 2013Q4

REPORT INFORMATION
  Report Type: Spontaneous
  Country: US (occurrence: US)
  Receive Date: 20131216
  Receipt Date: 20131216
  Transmission Date: 20140711
  Serious: Yes (Other)
  Sender: FDA-Public Use
  Company Number: US-ASTRAZENECA-2013SE89628

PATIENT
  Age: 33 Year
  Sex: Male

DRUGS (6)
  1. PROPOFOL [Suspect]
     Indication: INDUCTION OF ANAESTHESIA
     Route: 042
  2. PROPOFOL [Suspect]
     Indication: SEDATION
     Route: 042
  3. PROPOFOL [Suspect]
     Indication: INDUCTION OF ANAESTHESIA
     Route: 042
  4. PROPOFOL [Suspect]
     Indication: SEDATION
     Route: 042
  5. PROPOFOL [Suspect]
     Indication: INDUCTION OF ANAESTHESIA
     Dosage: AT A RATE OF 5MCG/KG/MIN
     Route: 042
  6. PROPOFOL [Suspect]
     Indication: SEDATION
     Dosage: AT A RATE OF 5MCG/KG/MIN
     Route: 042

REACTIONS (1)
  - Drug-induced liver injury [Recovered/Resolved]
